FAERS Safety Report 8109005-0 (Version None)
Quarter: 2012Q1

REPORT INFORMATION
  Report Type: 
  Country: None (occurrence: None)
  Receive Date: 20120202
  Receipt Date: 20120106
  Transmission Date: 20120608
  Serious: No
  Sender: FDA-Public Use
  Company Number: US-AMGEN-USASP2012001031

PATIENT
  Age: 43 Year
  Sex: Female

DRUGS (1)
  1. ENBREL [Suspect]
     Indication: RHEUMATOID ARTHRITIS
     Dosage: 50 MG, QWK
     Dates: start: 20100330

REACTIONS (8)
  - PAIN [None]
  - PYREXIA [None]
  - FATIGUE [None]
  - ASTHENIA [None]
  - OROPHARYNGEAL PAIN [None]
  - SINUSITIS [None]
  - COUGH [None]
  - EAR PRURITUS [None]
